FAERS Safety Report 11137209 (Version 2)
Quarter: 2015Q2

REPORT INFORMATION
  Report Type: Spontaneous
  Country: US (occurrence: US)
  Receive Date: 20150526
  Receipt Date: 20150621
  Transmission Date: 20150821
  Serious: Yes (Hospitalization)
  Sender: FDA-Public Use
  Company Number: US-009507513-1505USA009879

PATIENT
  Sex: Female

DRUGS (2)
  1. GABAPENTIN. [Concomitant]
     Active Substance: GABAPENTIN
     Dosage: 1 PILL, PER DAY
  2. PROVENTIL [Suspect]
     Active Substance: ALBUTEROL
     Dosage: UNK
     Route: 055

REACTIONS (12)
  - Gait disturbance [Unknown]
  - Balance disorder [Recovered/Resolved]
  - Fall [Unknown]
  - Vomiting [Unknown]
  - Chills [Unknown]
  - Tremor [Unknown]
  - Dyskinesia [Unknown]
  - Speech disorder [Unknown]
  - Adverse event [Unknown]
  - Drug hypersensitivity [Unknown]
  - Somnolence [Unknown]
  - Swelling [Unknown]
